FAERS Safety Report 18731890 (Version 1)
Quarter: 2021Q1

REPORT INFORMATION
  Report Type: Spontaneous
  Country: US (occurrence: US)
  Receive Date: 20210112
  Receipt Date: 20210112
  Transmission Date: 20210419
  Serious: No
  Sender: FDA-Public Use
  Company Number: US-PRINSTON PHARMACEUTICAL INC.-2020PRN00047

PATIENT
  Age: 34 Year
  Sex: Male
  Weight: 90.7 kg

DRUGS (6)
  1. OXCARBAZEPINE. [Concomitant]
     Active Substance: OXCARBAZEPINE
  2. PREGABALIN. [Concomitant]
     Active Substance: PREGABALIN
  3. ZONISAMIDE. [Concomitant]
     Active Substance: ZONISAMIDE
  4. RISPERIDONE. [Suspect]
     Active Substance: RISPERIDONE
     Indication: EPILEPSY
     Dosage: 2 MG, 1X/DAY
     Route: 048
     Dates: start: 20200205
  5. RISPERIDONE. [Suspect]
     Active Substance: RISPERIDONE
     Indication: SEIZURE
  6. CLOBAZAM. [Concomitant]
     Active Substance: CLOBAZAM

REACTIONS (4)
  - Secretion discharge [Recovering/Resolving]
  - Product use in unapproved indication [Not Recovered/Not Resolved]
  - Hyperhidrosis [Recovering/Resolving]
  - Heart rate increased [Not Recovered/Not Resolved]

NARRATIVE: CASE EVENT DATE: 202002
